FAERS Safety Report 10052897 (Version 3)
Quarter: 2014Q2

REPORT INFORMATION
  Report Type: Report from Study
  Country: DE (occurrence: IL)
  Receive Date: 20140402
  Receipt Date: 20140430
  Transmission Date: 20141212
  Serious: Yes (Death, Other)
  Sender: FDA-Public Use
  Company Number: DE-ACTELION-A-US2014-95966

PATIENT
  Age: 21 Year
  Sex: Male

DRUGS (2)
  1. VENTAVIS [Suspect]
     Indication: PULMONARY HYPERTENSION
     Dosage: UNK
     Route: 055
     Dates: start: 20140226, end: 201403
  2. CLEXANE [Concomitant]

REACTIONS (2)
  - Antiphospholipid syndrome [Fatal]
  - Haemoptysis [Not Recovered/Not Resolved]
